FAERS Safety Report 7420910-0 (Version None)
Quarter: 2011Q2

REPORT INFORMATION
  Report Type: 
  Country: None (occurrence: None)
  Receive Date: 20110418
  Receipt Date: 20110304
  Transmission Date: 20111010
  Serious: Yes (Death)
  Sender: FDA-Public Use
  Company Number: B0704676A

PATIENT
  Sex: Female

DRUGS (4)
  1. PREDNISOLONE [Concomitant]
     Dosage: 10MG PER DAY
     Dates: start: 20110128
  2. CLARITHROMYCIN [Concomitant]
     Route: 048
     Dates: start: 20110214
  3. REVOLADE [Suspect]
     Indication: IDIOPATHIC THROMBOCYTOPENIC PURPURA
     Dosage: 12.5MG PER DAY
     Route: 048
     Dates: start: 20110202, end: 20110303
  4. MAGMITT [Concomitant]
     Dosage: 660MG PER DAY
     Route: 048
     Dates: start: 20110228

REACTIONS (1)
  - LIVER DISORDER [None]
